FAERS Safety Report 8011646-6 (Version None)
Quarter: 2011Q4

REPORT INFORMATION
  Report Type: 
  Country: None (occurrence: None)
  Receive Date: 20111228
  Receipt Date: 20111108
  Transmission Date: 20120403
  Serious: Yes (Other)
  Sender: FDA-Public Use
  Company Number: BR-ROCHE-1010880

PATIENT
  Sex: Female
  Weight: 60 kg

DRUGS (5)
  1. FLUOXETINE [Concomitant]
     Indication: FIBROMYALGIA
  2. METFORMIN HCL [Concomitant]
     Indication: DIABETES MELLITUS
  3. BONIVA [Suspect]
     Indication: OSTEOPOROSIS
     Route: 048
  4. OS-CAL [Suspect]
     Indication: OSTEOPOROSIS
  5. CLOXAZOLAM [Concomitant]
     Indication: SOMNOLENCE
     Dosage: 1 TABLET AT NIGHT.

REACTIONS (5)
  - FRACTURE DELAYED UNION [None]
  - OSTEOPOROSIS [None]
  - CARDIAC DISORDER [None]
  - NEPHROLITHIASIS [None]
  - HAND FRACTURE [None]
